FAERS Safety Report 5244947-5 (Version None)
Quarter: 2007Q1

REPORT INFORMATION
  Report Type: 
  Country: None (occurrence: None)
  Receive Date: 20070223
  Receipt Date: 20070213
  Transmission Date: 20070707
  Serious: Yes (Hospitalization)
  Sender: FDA-Public Use
  Company Number: US-JNJFOC-20070203342

PATIENT
  Age: 20 Year
  Sex: Female

DRUGS (2)
  1. REMICADE [Suspect]
     Indication: CROHN'S DISEASE
     Dosage: ON INFLIXIMAB FOR 7 TO 8 YEARS
     Route: 042
  2. IMMUNOMODULATORS [Concomitant]

REACTIONS (2)
  - MYOCARDIAL INFARCTION [None]
  - PLATELET COUNT INCREASED [None]
